FAERS Safety Report 9917683 (Version 1)
Quarter: 2014Q1

REPORT INFORMATION
  Report Type: Report from Study
  Country: IL (occurrence: IL)
  Receive Date: 20140221
  Receipt Date: 20140221
  Transmission Date: 20141002
  Serious: Yes (Other)
  Sender: FDA-Public Use
  Company Number: IL-BAXTER-2014BAX009023

PATIENT
  Sex: 0

DRUGS (2)
  1. KIOVIG [Suspect]
     Indication: MYASTHENIA GRAVIS
     Dosage: 2 G/KG OVER 5 DAYS
     Route: 042
  2. KIOVIG [Suspect]
     Indication: OFF LABEL USE
     Dosage: 0.4 G/KG EVERY 3 TO 6 WEEKS
     Route: 042

REACTIONS (1)
  - Cerebrovascular accident [Unknown]
